FAERS Safety Report 15182758 (Version 2)
Quarter: 2018Q3

REPORT INFORMATION
  Report Type: Report from Study
  Country: CA (occurrence: CA)
  Receive Date: 20180723
  Receipt Date: 20180928
  Transmission Date: 20181010
  Serious: Yes (Other)
  Sender: FDA-Public Use
  Company Number: CA-ASTELLAS-2018US033169

PATIENT
  Age: 79 Year
  Sex: Female

DRUGS (1)
  1. ERLOTINIB [Suspect]
     Active Substance: ERLOTINIB
     Indication: NON-SMALL CELL LUNG CANCER METASTATIC
     Dosage: UNK, UNKNOWN FREQ.
     Route: 065
     Dates: start: 2007, end: 20180514

REACTIONS (3)
  - Dementia Alzheimer^s type [Unknown]
  - Decreased appetite [Unknown]
  - Anxiety [Unknown]

NARRATIVE: CASE EVENT DATE: 2015
